FAERS Safety Report 10542955 (Version 1)
Quarter: 2014Q4

REPORT INFORMATION
  Report Type: Spontaneous
  Country: US (occurrence: None)
  Receive Date: 20141024
  Receipt Date: 20141024
  Transmission Date: 20150529
  Serious: No
  Sender: FDA-Public Use
  Company Number: None

PATIENT
  Age: 12 Year
  Sex: Female
  Weight: 44 kg

DRUGS (1)
  1. ADAPALENE. [Suspect]
     Active Substance: ADAPALENE
     Indication: ACNE
     Dosage: CREAM, AS NEEDED, APPLIED TO A SURFACE, USUALLY THE SKIN
     Dates: start: 20141022, end: 20141023

REACTIONS (2)
  - Eye swelling [None]
  - Eye disorder [None]

NARRATIVE: CASE EVENT DATE: 20141023
